FAERS Safety Report 13803094 (Version 1)
Quarter: 2017Q3

REPORT INFORMATION
  Report Type: Spontaneous
  Country: US (occurrence: US)
  Receive Date: 20170727
  Receipt Date: 20170727
  Transmission Date: 20171127
  Serious: No
  Sender: FDA-Public Use
  Company Number: None

PATIENT
  Age: 54 Year
  Sex: Female

DRUGS (1)
  1. TEMOZOLOMIDE CAP 100MG [Suspect]
     Active Substance: TEMOZOLOMIDE
     Dosage: 220MG DAYS 1-5 OF EA PO
     Route: 048
     Dates: start: 20170427

REACTIONS (1)
  - Muscular weakness [None]

NARRATIVE: CASE EVENT DATE: 20170727
